FAERS Safety Report 8548238-6 (Version None)
Quarter: 2012Q3

REPORT INFORMATION
  Report Type: 
  Country: None (occurrence: None)
  Receive Date: 20120730
  Receipt Date: 20120723
  Transmission Date: 20120928
  Serious: Yes (Hospitalization)
  Sender: FDA-Public Use
  Company Number: US-009507513-1207USA009673

PATIENT

DRUGS (3)
  1. PRINIVIL [Suspect]
     Dosage: 5 MG, QD
  2. METFORMIN HYDROCHLORIDE [Suspect]
     Dosage: 1000 MG, BID
     Route: 048
  3. ZOCOR [Suspect]
     Dosage: 20 MG, QD
     Route: 048

REACTIONS (13)
  - URINARY TRACT INFECTION [None]
  - HYPOTENSION [None]
  - SYNCOPE [None]
  - SHOCK [None]
  - RESPIRATORY DISTRESS [None]
  - RESPIRATORY FAILURE [None]
  - ASTHENIA [None]
  - ESCHERICHIA TEST POSITIVE [None]
  - LACTIC ACIDOSIS [None]
  - HYPOTHERMIA [None]
  - CULTURE URINE POSITIVE [None]
  - RENAL FAILURE ACUTE [None]
  - BLOOD GLUCOSE DECREASED [None]
